FAERS Safety Report 8301294-2 (Version None)
Quarter: 2012Q2

REPORT INFORMATION
  Report Type: 
  Country: None (occurrence: None)
  Receive Date: 20120420
  Receipt Date: 20120411
  Transmission Date: 20120825
  Serious: Yes (Other)
  Sender: FDA-Public Use
  Company Number: BR-ASTRAZENECA-2012SE24322

PATIENT
  Age: 63 Year
  Sex: Female
  Weight: 64 kg

DRUGS (6)
  1. CRESTOR [Suspect]
     Route: 048
     Dates: start: 20110901
  2. SOMALGIN [Concomitant]
     Route: 048
  3. CRESTOR [Suspect]
     Indication: BLOOD CHOLESTEROL INCREASED
     Route: 048
     Dates: start: 20080101, end: 20110901
  4. LEXOTAN [Concomitant]
     Indication: INSOMNIA
     Route: 048
  5. VASOPRIL [Concomitant]
     Route: 048
     Dates: start: 20020101
  6. LEVOTHYROXINE SODIUM [Concomitant]
     Route: 048
     Dates: start: 19820101

REACTIONS (1)
  - CAROTID ARTERY OCCLUSION [None]
